FAERS Safety Report 6465531-1 (Version None)
Quarter: 2009Q4

REPORT INFORMATION
  Report Type: 
  Country: None (occurrence: None)
  Receive Date: 20091201
  Receipt Date: 20090603
  Transmission Date: 20100525
  Serious: No
  Sender: FDA-Public Use
  Company Number: US-AMGEN-KDL313704

PATIENT
  Sex: Female
  Weight: 104.4 kg

DRUGS (1)
  1. ENBREL [Suspect]
     Indication: RHEUMATOID ARTHRITIS
     Route: 058
     Dates: start: 20080101

REACTIONS (4)
  - CYSTITIS [None]
  - EAR INFECTION [None]
  - JOINT SWELLING [None]
  - TOOTHACHE [None]
